FAERS Safety Report 5603856-X (Version None)
Quarter: 2008Q1

REPORT INFORMATION
  Report Type: 
  Country: None (occurrence: None)
  Receive Date: 20080109
  Receipt Date: 20080109
  Transmission Date: 20080703
  Serious: Yes (Other)
  Sender: FDA-Public Use
  Company Number: None

PATIENT
  Age: 67 Year
  Sex: Male

DRUGS (1)
  1. SCOPE [Suspect]
     Dosage: 1 APPLICATION, 3/DAY (DAILY DOSE)- UNKNOWN (TOTAL DOSE)
     Route: 048
     Dates: start: 19971127

REACTIONS (3)
  - BLOOD UREA INCREASED [None]
  - MALIGNANT MELANOMA [None]
  - ORAL DISORDER [None]
